FAERS Safety Report 9682790 (Version 2)
Quarter: 2013Q4

REPORT INFORMATION
  Report Type: Spontaneous
  Country: US (occurrence: US)
  Receive Date: 20131112
  Receipt Date: 20131112
  Transmission Date: 20140711
  Serious: Yes (Hospitalization, Other)
  Sender: FDA-Public Use
  Company Number: PHEH2013US010490

PATIENT
  Age: 56 Year
  Sex: Female

DRUGS (21)
  1. TOBI [Suspect]
     Dosage: 1 DF, BID
     Dates: start: 20121123, end: 20121125
  2. TOBI [Suspect]
     Dosage: 1 DF, BID
     Dates: end: 201212
  3. AYR SALINE [Concomitant]
     Dosage: UNK UKN, UNK
  4. BUPAP [Concomitant]
     Dosage: UNK UKN, UNK
  5. ALBUTEROL SULFATE [Concomitant]
     Dosage: 1 DF, Q4H
  6. IPRATROPIUM BROMIDE [Concomitant]
     Dosage: 6 TIMES A DAY
  7. ROBITUSSIN                         /00200801/ [Concomitant]
     Dosage: 5-10 ML AS NEEDED, Q8H
  8. BUDESONIDE [Concomitant]
     Dosage: 1 ML, BID
  9. ACAPELLA [Concomitant]
     Indication: BRONCHIECTASIS
     Dosage: UNK UKN, UNK
  10. ADVAIR DISKUS [Concomitant]
     Dosage: 1 DF, UNK
  11. VITAMIN B COMPLEX [Concomitant]
     Dosage: UNK UKN, UNK
  12. HUMALOG [Concomitant]
     Dosage: 100 U/ML, UNK
  13. SINGULAIR [Concomitant]
     Dosage: 1 DF, QD IN THE EVENING
  14. OMEPRAZOLE [Concomitant]
     Dosage: 1 DF, BID
  15. CALCIUM [Concomitant]
     Dosage: 1 DF, BID AFTER MEALS
  16. VIT D3 [Concomitant]
     Dosage: 1 DF, QD
  17. LANTUS [Concomitant]
     Dosage: 0.02 ML, QD
  18. VITAMIN B12 + FOLIC ACID [Concomitant]
     Dosage: 1 DF, UNK
  19. VORICONAZOLE [Concomitant]
     Dosage: 1 DF, BID
  20. OXYGEN [Concomitant]
     Dosage: UNK UKN, UNK
  21. LOSARTAN POTASSIUM [Concomitant]
     Dosage: 1 DF, QD

REACTIONS (61)
  - Bronchiectasis [Unknown]
  - Haemoptysis [Unknown]
  - Muscular weakness [Unknown]
  - Rales [Unknown]
  - Rhonchi [Unknown]
  - Hypercapnia [Unknown]
  - Fatigue [Unknown]
  - Chest pain [Unknown]
  - Productive cough [Unknown]
  - Malaise [Unknown]
  - Asthma [Unknown]
  - Wheezing [Unknown]
  - Musculoskeletal discomfort [Unknown]
  - Chest discomfort [Unknown]
  - Dyspnoea [Unknown]
  - Dyspnoea exertional [Unknown]
  - Drug hypersensitivity [Unknown]
  - Tongue disorder [Unknown]
  - Swollen tongue [Unknown]
  - Swelling face [Unknown]
  - Lip swelling [Unknown]
  - Oedema mouth [Unknown]
  - Joint swelling [Unknown]
  - Infected cyst [Unknown]
  - Sinus tachycardia [Unknown]
  - Supraventricular extrasystoles [Unknown]
  - Back pain [Unknown]
  - Dysphonia [Unknown]
  - Insomnia [Unknown]
  - Blood pressure increased [Unknown]
  - Mood altered [Unknown]
  - Rhinorrhoea [Unknown]
  - Dry skin [Unknown]
  - Somnolence [Unknown]
  - Nasal mucosal disorder [Unknown]
  - Nasal oedema [Unknown]
  - Oedema peripheral [Unknown]
  - Drug intolerance [Unknown]
  - Headache [Unknown]
  - Tooth abscess [Unknown]
  - Restlessness [Unknown]
  - Weight increased [Unknown]
  - Hypernatraemia [Unknown]
  - Erythema [Unknown]
  - Musculoskeletal stiffness [Unknown]
  - Heart rate increased [Unknown]
  - Fluid retention [Unknown]
  - Hypoaesthesia [Unknown]
  - Upper-airway cough syndrome [Unknown]
  - Anxiety [Unknown]
  - Neck pain [Unknown]
  - Skin lesion [Unknown]
  - Respiratory tract congestion [Unknown]
  - Tonsillitis [Unknown]
  - Upper respiratory tract infection [Unknown]
  - Pain in extremity [Unknown]
  - Blood glucose abnormal [Unknown]
  - Chills [Unknown]
  - Pruritus [Unknown]
  - Oropharyngeal pain [Unknown]
  - Myalgia [Unknown]
